FAERS Safety Report 12237824 (Version 1)
Quarter: 2016Q2

REPORT INFORMATION
  Report Type: Spontaneous
  Country: US (occurrence: None)
  Receive Date: 20160404
  Receipt Date: 20160404
  Transmission Date: 20160815
  Serious: Yes (Hospitalization)
  Sender: FDA-Public Use
  Company Number: None

PATIENT
  Age: 61 Year
  Sex: Female
  Weight: 56.7 kg

DRUGS (5)
  1. SYNTHROID [Concomitant]
     Active Substance: LEVOTHYROXINE SODIUM
  2. VITAMIN D3 [Concomitant]
     Active Substance: CHOLECALCIFEROL
  3. CLINDAMYCIN 150 MG CAP, 150 MG WATSON LABS [Suspect]
     Active Substance: CLINDAMYCIN PHOSPHATE
     Indication: PROPHYLAXIS
     Route: 048
     Dates: start: 20160217, end: 20160222
  4. CLINDAMYCIN 150 MG CAP, 150 MG WATSON LABS [Suspect]
     Active Substance: CLINDAMYCIN PHOSPHATE
     Indication: ENDODONTIC PROCEDURE
     Route: 048
     Dates: start: 20160217, end: 20160222
  5. PB 8- PROBIOTIC [Concomitant]

REACTIONS (5)
  - Hyponatraemia [None]
  - Urine output decreased [None]
  - Vomiting [None]
  - Dehydration [None]
  - Nausea [None]

NARRATIVE: CASE EVENT DATE: 20160225
